FAERS Safety Report 7043610-8 (Version None)
Quarter: 2010Q4

REPORT INFORMATION
  Report Type: 
  Country: None (occurrence: None)
  Receive Date: 20101013
  Receipt Date: 20101005
  Transmission Date: 20110411
  Serious: Yes (Life-Threatening, Hospitalization)
  Sender: FDA-Public Use
  Company Number: B0672848A

PATIENT
  Age: 60 Year
  Sex: Female

DRUGS (11)
  1. ZYLORIC [Suspect]
     Dosage: 100MG PER DAY
     Route: 048
     Dates: start: 20100802, end: 20100823
  2. FUROSEMIDE [Suspect]
     Indication: HYPERTENSION
     Dosage: 80MG PER DAY
     Route: 065
     Dates: end: 20100823
  3. ARTIST [Suspect]
     Indication: PRODUCT USED FOR UNKNOWN INDICATION
     Dosage: 10MG PER DAY
     Route: 048
  4. MEXITIL [Suspect]
     Indication: DIABETES MELLITUS
     Dosage: 300MG PER DAY
     Dates: end: 20100823
  5. FLUVASTATIN [Suspect]
     Indication: HYPERTENSION
     Dosage: 20MG PER DAY
     Route: 048
     Dates: end: 20100823
  6. SELBEX [Suspect]
     Indication: PRODUCT USED FOR UNKNOWN INDICATION
     Dosage: 150MG PER DAY
     Route: 048
     Dates: end: 20100823
  7. AMLODIPINE BESYLATE [Suspect]
     Indication: HYPERTENSION
     Dosage: 5MG PER DAY
     Dates: end: 20100823
  8. PREDONINE [Concomitant]
     Dosage: 8MG PER DAY
     Route: 065
     Dates: start: 20100802
  9. WARFARIN SODIUM [Concomitant]
     Indication: ATRIAL FIBRILLATION
     Dosage: 1.5MG PER DAY
     Route: 048
  10. SELBEX [Concomitant]
     Dosage: 150MG PER DAY
     Route: 048
     Dates: end: 20100823
  11. ARTIST [Concomitant]
     Dosage: 10MG PER DAY
     Route: 048

REACTIONS (4)
  - AGRANULOCYTOSIS [None]
  - DIARRHOEA [None]
  - NEUTROPENIA [None]
  - PYREXIA [None]
